FAERS Safety Report 25828686 (Version 1)
Quarter: 2025Q3

REPORT INFORMATION
  Report Type: Spontaneous
  Country: EU (occurrence: None)
  Receive Date: 20250922
  Receipt Date: 20250922
  Transmission Date: 20251020
  Serious: Yes (Hospitalization)
  Sender: ENCUBE ETHICALS PVT. LTD.
  Company Number: EU-Encube-002263

PATIENT
  Age: 77 Year
  Sex: Female

DRUGS (2)
  1. CLINDAMYCIN PHOSPHATE [Suspect]
     Active Substance: CLINDAMYCIN PHOSPHATE
     Indication: Infected bite
  2. CEFDITOREN [Concomitant]
     Active Substance: CEFDITOREN
     Indication: Infected bite

REACTIONS (2)
  - Acute generalised exanthematous pustulosis [Recovered/Resolved]
  - Off label use [Unknown]
